FAERS Safety Report 9216624 (Version 1)
Quarter: 2013Q1

REPORT INFORMATION
  Report Type: Spontaneous
  Country: US (occurrence: None)
  Receive Date: 20130228
  Receipt Date: 20130228
  Transmission Date: 20140127
  Serious: Yes (Hospitalization, Other)
  Sender: FDA-Public Use
  Company Number: NPIL/SEV/H/2013/50

PATIENT
  Age: 14 Year
  Sex: Female

DRUGS (1)
  1. SEVOFLURANE [Suspect]
     Indication: ANAESTHESIA
     Route: 055

REACTIONS (4)
  - Respiratory distress [None]
  - Hypoxia [None]
  - Lung infiltration [None]
  - Acute promyelocytic leukaemia differentiation syndrome [None]
